FAERS Safety Report 7737441-0 (Version None)
Quarter: 2011Q3

REPORT INFORMATION
  Report Type: 
  Country: None (occurrence: None)
  Receive Date: 20110908
  Receipt Date: 20110826
  Transmission Date: 20111222
  Serious: Yes (Hospitalization)
  Sender: FDA-Public Use
  Company Number: US-GLAXOSMITHKLINE-A0896871A

PATIENT
  Age: 66 Year
  Sex: Male
  Weight: 85.9 kg

DRUGS (6)
  1. ZETIA [Concomitant]
  2. GLUCOPHAGE [Concomitant]
  3. AVANDIA [Suspect]
     Indication: DIABETES MELLITUS
     Dosage: 4MG TWICE PER DAY
     Route: 048
     Dates: start: 20060310, end: 20070101
  4. LISINOPRIL AND HYDROCHLOROTHIAZIDE [Concomitant]
  5. ZANTAC [Concomitant]
  6. CRESTOR [Concomitant]

REACTIONS (4)
  - STENT PLACEMENT [None]
  - CARDIAC FAILURE CONGESTIVE [None]
  - ARTERIOSCLEROSIS [None]
  - ATRIAL FIBRILLATION [None]
